FAERS Safety Report 4709091-1 (Version None)
Quarter: 2005Q3

REPORT INFORMATION
  Report Type: 
  Country: None (occurrence: None)
  Receive Date: 20050705
  Receipt Date: 20050621
  Transmission Date: 20060218
  Serious: Yes (Other)
  Sender: FDA-Public Use
  Company Number: 2004089797

PATIENT
  Sex: Male
  Weight: 97.5234 kg

DRUGS (2)
  1. DILANTIN KAPSEAL [Suspect]
     Indication: EPILEPSY
     Dosage: 300 MG (1 IN 1 D), ORAL
     Route: 048
  2. VITAMINS (VITAMINS) [Concomitant]

REACTIONS (7)
  - CEREBROVASCULAR ACCIDENT [None]
  - CHOKING [None]
  - COMA [None]
  - EYE PAIN [None]
  - FEELING JITTERY [None]
  - HEADACHE [None]
  - MEMORY IMPAIRMENT [None]
